FAERS Safety Report 8972760 (Version 1)
Quarter: 2012Q4

REPORT INFORMATION
  Report Type: Report from Study
  Country: US (occurrence: US)
  Receive Date: 20121218
  Receipt Date: 20121218
  Transmission Date: 20130627
  Serious: Yes (Hospitalization)
  Sender: FDA-Public Use
  Company Number: US-ROCHE-1170415

PATIENT
  Sex: Male
  Weight: 102.15 kg

DRUGS (2)
  1. OMALIZUMAB [Suspect]
     Indication: ASTHMA
     Route: 058
  2. AMLODIPINE/BENAZEPRIL HYDROCHLORIDE [Concomitant]
     Route: 065

REACTIONS (1)
  - Appendicectomy [Unknown]
